FAERS Safety Report 4907318-4 (Version None)
Quarter: 2006Q1

REPORT INFORMATION
  Report Type: 
  Country: None (occurrence: None)
  Receive Date: 20060208
  Receipt Date: 20060208
  Transmission Date: 20060701
  Serious: Yes (Hospitalization)
  Sender: FDA-Public Use
  Company Number: None

PATIENT
  Age: 79 Year
  Sex: Male

DRUGS (10)
  1. BACLOFEN [Suspect]
     Dosage: 5 MG TID
     Dates: start: 20050902
  2. AMITRIPTYLINE HCL [Suspect]
     Dosage: 20 MG Q HS
     Dates: start: 20050201
  3. GUAIFENESIN [Concomitant]
  4. SALSALATE [Concomitant]
  5. ALLOPURINOL [Concomitant]
  6. ASPIRIN [Concomitant]
  7. FUROSEMIDE [Concomitant]
  8. LEVOTHYROXINE SODIUM [Concomitant]
  9. M.V.I. [Concomitant]
  10. ZOCOR [Concomitant]

REACTIONS (1)
  - DIZZINESS [None]
